FAERS Safety Report 7900236-9 (Version None)
Quarter: 2011Q4

REPORT INFORMATION
  Report Type: 
  Country: None (occurrence: None)
  Receive Date: 20111104
  Receipt Date: 20111024
  Transmission Date: 20120403
  Serious: Yes (Life-Threatening, Hospitalization, Other)
  Sender: FDA-Public Use
  Company Number: FK201102452

PATIENT
  Age: 51 Year

DRUGS (1)
  1. VANCOMYCIN HYDROCHLORIDE [Suspect]
     Indication: SEPTIC SHOCK

REACTIONS (3)
  - INTRACARDIAC MASS [None]
  - AORTIC VALVE DISEASE [None]
  - SEPTIC SHOCK [None]
